FAERS Safety Report 9221553 (Version 1)
Quarter: 2013Q1

REPORT INFORMATION
  Report Type: Spontaneous
  Country: US (occurrence: None)
  Receive Date: 20120831
  Receipt Date: 20120831
  Transmission Date: 20140127
  Serious: Yes (Other)
  Sender: FDA-Public Use
  Company Number: 1000029148

PATIENT
  Age: 69 Year
  Sex: Male
  Weight: 77 kg

DRUGS (11)
  1. DALIRESP [Suspect]
     Indication: CHRONIC OBSTRUCTIVE PULMONARY DISEASE
     Dates: start: 20120202, end: 20120306
  2. LASIX (FUROSEMIDE) (FUROSEMIDE) [Concomitant]
  3. GLIMEPIRIDE (GLIMEPIRIDE) (GLIMEPIRIDE) [Concomitant]
  4. K-DUR (POTASSIUM CHLORIDE) (POTASSIUM CHLORIDE) [Concomitant]
  5. PREDNISONE (PREDNISONE) (PREDNISONE) [Concomitant]
  6. VENTOLIN (ALBUTEROL) (ALBUTEROL) [Concomitant]
  7. LIPITOR (ATORVASTATIN CALCIUM) (ATORVASTATIN CALCIUM) [Concomitant]
  8. ADVAIR (SERETIDE) (SERETIDE) [Concomitant]
  9. TRILEPTAL (OXCARBAZEPINE0 (OXCARBAZEPINE) [Concomitant]
  10. TRAZODONE (TRAZODONE) (TRAZODONE) [Concomitant]
  11. SPIRIVA (TIOTROPIUM BROMIDE) (TIOTROPIUM BROMIDE) [Concomitant]

REACTIONS (1)
  - Atrial fibrillation [None]
